FAERS Safety Report 8431643-6 (Version None)
Quarter: 2012Q2

REPORT INFORMATION
  Report Type: 
  Country: None (occurrence: None)
  Receive Date: 20120613
  Receipt Date: 20111101
  Transmission Date: 20120825
  Serious: No
  Sender: FDA-Public Use
  Company Number: US-GLAXOSMITHKLINE-A0956477A

PATIENT

DRUGS (2)
  1. NO CONCURRENT MEDICATION [Concomitant]
  2. TREXIMET [Suspect]

REACTIONS (1)
  - EPISTAXIS [None]
